FAERS Safety Report 22155815 (Version 1)
Quarter: 2023Q1

REPORT INFORMATION
  Report Type: Spontaneous
  Country: US (occurrence: None)
  Receive Date: 20230329
  Receipt Date: 20230329
  Transmission Date: 20230418
  Serious: No
  Sender: FDA-Public Use
  Company Number: None

PATIENT
  Age: 56 Year
  Sex: Male

DRUGS (1)
  1. ERLOTINIB [Suspect]
     Active Substance: ERLOTINIB
     Dosage: FREQUENCY : DAILY;?OTHER ROUTE : OTHER;?
     Route: 050

REACTIONS (1)
  - Death [None]

NARRATIVE: CASE EVENT DATE: 20230328
